FAERS Safety Report 5113000-3 (Version None)
Quarter: 2006Q3

REPORT INFORMATION
  Report Type: 
  Country: None (occurrence: None)
  Receive Date: 20060921
  Receipt Date: 20060921
  Transmission Date: 20061208
  Serious: Yes (Hospitalization)
  Sender: FDA-Public Use
  Company Number: None

PATIENT
  Age: 11 Year
  Sex: Male
  Weight: 24.1 kg

DRUGS (3)
  1. REMODULIN [Suspect]
     Indication: PULMONARY HYPERTENSION
     Dosage: 142 NG/KG/MIN CONTINOUS IV DRIP
     Route: 041
     Dates: start: 20050525, end: 20060920
  2. COUMADIN [Concomitant]
  3. SILDENAFIL [Concomitant]

REACTIONS (6)
  - BACTERIA WOUND IDENTIFIED [None]
  - CATHETER RELATED COMPLICATION [None]
  - ERYTHEMA [None]
  - POST PROCEDURAL DRAINAGE [None]
  - PSEUDOMONAS INFECTION [None]
  - TENDERNESS [None]
